FAERS Safety Report 6955753-5 (Version None)
Quarter: 2010Q3

REPORT INFORMATION
  Report Type: 
  Country: None (occurrence: None)
  Receive Date: 20100830
  Receipt Date: 20100819
  Transmission Date: 20110219
  Serious: Yes (Other)
  Sender: FDA-Public Use
  Company Number: JP-ROCHE-720484

PATIENT
  Sex: Female

DRUGS (19)
  1. ACTEMRA [Suspect]
     Indication: RHEUMATOID ARTHRITIS
     Route: 041
     Dates: start: 20080730, end: 20080730
  2. ACTEMRA [Suspect]
     Route: 041
     Dates: start: 20080827, end: 20080827
  3. ACTEMRA [Suspect]
     Route: 041
     Dates: start: 20080924, end: 20080924
  4. ACTEMRA [Suspect]
     Route: 041
     Dates: start: 20081022, end: 20081022
  5. ACTEMRA [Suspect]
     Route: 041
     Dates: start: 20081119, end: 20081119
  6. ACTEMRA [Suspect]
     Route: 041
     Dates: start: 20081217, end: 20081217
  7. ACTEMRA [Suspect]
     Route: 041
     Dates: start: 20090114, end: 20090114
  8. ACTEMRA [Suspect]
     Route: 041
     Dates: start: 20090209, end: 20090209
  9. ACTEMRA [Suspect]
     Route: 041
     Dates: start: 20090309, end: 20090309
  10. ACTEMRA [Suspect]
     Route: 041
     Dates: start: 20090406, end: 20090406
  11. ACTEMRA [Suspect]
     Route: 041
  12. RHEUMATREX [Concomitant]
     Route: 048
  13. SULFASALAZINE [Concomitant]
     Route: 048
  14. ISONIAZID [Concomitant]
     Route: 048
     Dates: start: 20080709
  15. PREDNICORT (PREDNISOLONE) [Concomitant]
     Dosage: FORM: PERORAL AGENT
     Route: 048
     Dates: start: 20080812
  16. PREDNICORT (PREDNISOLONE) [Concomitant]
     Route: 048
     Dates: start: 20080813, end: 20081118
  17. PREDNICORT (PREDNISOLONE) [Concomitant]
     Route: 048
     Dates: start: 20081119
  18. HUMACART R [Concomitant]
     Route: 058
  19. BONALON [Concomitant]

REACTIONS (1)
  - CEREBRAL INFARCTION [None]
